FAERS Safety Report 13712831 (Version 2)
Quarter: 2017Q3

REPORT INFORMATION
  Report Type: Report from Study
  Country: IT (occurrence: IT)
  Receive Date: 20170703
  Receipt Date: 20170705
  Transmission Date: 20171127
  Serious: Yes (Hospitalization)
  Sender: FDA-Public Use
  Company Number: IT-TEVA-781909ACC

PATIENT
  Age: 55 Year
  Sex: Female

DRUGS (2)
  1. CITALOPRAM [Suspect]
     Active Substance: CITALOPRAM HYDROBROMIDE
     Indication: DRUG USE DISORDER
     Route: 048
  2. TRITTICO - AZIENDE CHIMICHE RIUNITE ANGELINI FRANCESCO ACRAF SPA [Suspect]
     Active Substance: TRAZODONE HYDROCHLORIDE
     Indication: DRUG USE DISORDER
     Route: 048

REACTIONS (5)
  - Psychomotor hyperactivity [Unknown]
  - Sopor [Unknown]
  - Overdose [Unknown]
  - Intentional self-injury [Unknown]
  - Drug abuse [Unknown]

NARRATIVE: CASE EVENT DATE: 20170520
